FAERS Safety Report 4262980-7 (Version None)
Quarter: 2004Q1

REPORT INFORMATION
  Report Type: 
  Country: None (occurrence: None)
  Receive Date: 20040102
  Receipt Date: 20040102
  Transmission Date: 20041129
  Serious: Yes (Hospitalization)
  Sender: FDA-Public Use
  Company Number: None

PATIENT
  Sex: Male

DRUGS (4)
  1. GOSERELIN [Suspect]
     Indication: PROSTATE CANCER
     Dosage: 10.8 MG SC Q 3 MO
     Route: 058
  2. SIMVASTATIN/NIACIN [Concomitant]
  3. COLCHICINE [Concomitant]
  4. APAP TAB [Concomitant]

REACTIONS (2)
  - RENAL FAILURE ACUTE [None]
  - RHABDOMYOLYSIS [None]
